FAERS Safety Report 6461591-2 (Version None)
Quarter: 2009Q4

REPORT INFORMATION
  Report Type: 
  Country: None (occurrence: None)
  Receive Date: 20091130
  Receipt Date: 20091117
  Transmission Date: 20100525
  Serious: Yes (Hospitalization, Other)
  Sender: FDA-Public Use
  Company Number: GB-ASTRAZENECA-2008GB00805

PATIENT
  Age: 22836 Day
  Sex: Male
  Weight: 52 kg

DRUGS (6)
  1. QUETIAPINE [Suspect]
     Indication: BIPOLAR DISORDER
     Route: 048
     Dates: start: 20050301, end: 20061101
  2. QUETIAPINE [Suspect]
     Indication: MANIA
     Route: 048
     Dates: start: 20050301, end: 20061101
  3. DEPAKOTE [Suspect]
     Indication: BIPOLAR DISORDER
     Route: 048
     Dates: start: 20050301, end: 20061101
  4. DEPAKOTE [Suspect]
     Indication: MANIA
     Route: 048
     Dates: start: 20050301, end: 20061101
  5. HUMAN ACTRAPID [Concomitant]
     Indication: DIABETES MELLITUS
     Dosage: 30 IU
     Route: 058
  6. REBOXETINE [Concomitant]
     Indication: DEPRESSION
     Route: 048
     Dates: start: 20061001, end: 20061101

REACTIONS (3)
  - ANAEMIA [None]
  - NEUTROPENIA [None]
  - THROMBOCYTOPENIA [None]
